FAERS Safety Report 22245915 (Version 1)
Quarter: 2023Q2

REPORT INFORMATION
  Report Type: Report from Study
  Country: BE (occurrence: BE)
  Receive Date: 20230424
  Receipt Date: 20230424
  Transmission Date: 20230722
  Serious: Yes (Other)
  Sender: FDA-Public Use
  Company Number: BE-JNJFOC-20230437716

PATIENT
  Age: 47 Year
  Sex: Female

DRUGS (2)
  1. SPRAVATO [Suspect]
     Active Substance: ESKETAMINE
     Indication: Depression
     Dosage: 2 DEVICES
     Dates: start: 20220525, end: 20220527
  2. SPRAVATO [Suspect]
     Active Substance: ESKETAMINE
     Dosage: 3 DEVICES
     Dates: start: 20220601, end: 20230414

REACTIONS (3)
  - Hypothyroidism [Recovering/Resolving]
  - Somnolence [Recovered/Resolved]
  - Hypertension [Recovered/Resolved]

NARRATIVE: CASE EVENT DATE: 20230317
